FAERS Safety Report 17705762 (Version 2)
Quarter: 2020Q2

REPORT INFORMATION
  Report Type: Report from Study
  Country: TW (occurrence: TW)
  Receive Date: 20200424
  Receipt Date: 20200602
  Transmission Date: 20200714
  Serious: Yes (Life-Threatening, Hospitalization)
  Sender: FDA-Public Use
  Company Number: TW-ROCHE-2572285

PATIENT
  Age: 67 Year
  Sex: Female
  Weight: 61 kg

DRUGS (5)
  1. EPIRUBICIN [Suspect]
     Active Substance: EPIRUBICIN
     Indication: TRIPLE NEGATIVE BREAST CANCER
     Dosage: ON 09/MAR/2020, SHE RECEIVED MOST RECENT DOSE (144.9 MG, EVERY TWO WEEKS) OF EPIRUBICIN
     Route: 042
     Dates: start: 20200224
  2. FILGRASTIM [Suspect]
     Active Substance: FILGRASTIM
     Indication: PRODUCT USED FOR UNKNOWN INDICATION
     Dosage: THREE INJECTION
     Route: 058
     Dates: start: 20200305, end: 20200307
  3. ATEZOLIZUMAB. [Suspect]
     Active Substance: ATEZOLIZUMAB
     Indication: TRIPLE NEGATIVE BREAST CANCER
     Dosage: ON 09/MAR/2020, SHE RECEIVED MOST RECENT DOSE (840 MG, EVERY TWO WEEKS) OF ATEZOLIZUMAB PRIOR TO EVE
     Route: 042
     Dates: start: 20191118
  4. CYCLOPHOSPHAMIDE. [Suspect]
     Active Substance: CYCLOPHOSPHAMIDE
     Indication: TRIPLE NEGATIVE BREAST CANCER
     Dosage: ON 09/MAR/2020, SHE RECEIVED MOST RECENT DOSE (966 MG, EVERY TWO WEEKS) OF CYCLOPHOSPHAMIDE PRIOR TO
     Route: 042
     Dates: start: 20200224
  5. PACLITAXEL. [Suspect]
     Active Substance: PACLITAXEL
     Indication: TRIPLE NEGATIVE BREAST CANCER
     Dosage: ON 17/FEB/2020, SHE RECEIVED MOST RECENT DOSE (128.8 MG, EVERY WEEK) OF PACLITAXEL PRIOR TO EVENT ON
     Route: 042
     Dates: start: 20191118

REACTIONS (1)
  - Acute respiratory distress syndrome [Recovered/Resolved]

NARRATIVE: CASE EVENT DATE: 20200318
